FAERS Safety Report 15681956 (Version 2)
Quarter: 2019Q1

REPORT INFORMATION
  Report Type: Report from Study
  Country: US (occurrence: US)
  Receive Date: 20181203
  Receipt Date: 20190104
  Transmission Date: 20190417
  Serious: Yes (Hospitalization, Other)
  Sender: FDA-Public Use
  Company Number: US-PFIZER INC-2018260681

PATIENT
  Age: 58 Year
  Sex: Female

DRUGS (1)
  1. IBRANCE [Suspect]
     Active Substance: PALBOCICLIB
     Indication: BREAST CANCER FEMALE
     Dosage: 125 MG, CYCLIC (DAILY, 21 ON, 7 OFF/21 DAYS ON AND 7 DAYS OFF)
     Route: 048
     Dates: start: 20180615, end: 20180908

REACTIONS (24)
  - White blood cell count decreased [Unknown]
  - Mobility decreased [Unknown]
  - Cyst [Recovering/Resolving]
  - Pain [Unknown]
  - Weight increased [Unknown]
  - Product dose omission [Unknown]
  - Chills [Not Recovered/Not Resolved]
  - Product storage error [Unknown]
  - Skin exfoliation [Unknown]
  - Disease recurrence [Recovering/Resolving]
  - Influenza like illness [Not Recovered/Not Resolved]
  - Nausea [Unknown]
  - Fatigue [Not Recovered/Not Resolved]
  - Neoplasm progression [Not Recovered/Not Resolved]
  - Pruritus generalised [Unknown]
  - Abscess limb [Not Recovered/Not Resolved]
  - Decreased appetite [Recovering/Resolving]
  - Suture rupture [Unknown]
  - Tooth fracture [Unknown]
  - Oedema peripheral [Not Recovered/Not Resolved]
  - Hidradenitis [Unknown]
  - Alopecia [Unknown]
  - Impaired healing [Not Recovered/Not Resolved]
  - Intentional product misuse [Unknown]

NARRATIVE: CASE EVENT DATE: 2018
